FAERS Safety Report 23604947 (Version 1)
Quarter: 2024Q1

REPORT INFORMATION
  Report Type: Spontaneous
  Country: US (occurrence: None)
  Receive Date: 20240306
  Receipt Date: 20240306
  Transmission Date: 20240409
  Serious: Yes (Hospitalization)
  Sender: FDA-Public Use
  Company Number: None

PATIENT
  Age: 41 Year
  Sex: Male
  Weight: 98.9 kg

DRUGS (2)
  1. CABENUVA [Suspect]
     Active Substance: CABOTEGRAVIR\RILPIVIRINE
     Indication: HIV infection
     Dosage: OTHER FREQUENCY : EVERY 2 MONTHS;?
     Route: 030
  2. Cabenunva [Concomitant]
     Dates: start: 20221017

REACTIONS (4)
  - Myalgia [None]
  - Hyperhidrosis [None]
  - Pyrexia [None]
  - Tachycardia [None]

NARRATIVE: CASE EVENT DATE: 20240108
